FAERS Safety Report 19945541 (Version 2)
Quarter: 2021Q4

REPORT INFORMATION
  Report Type: Spontaneous
  Country: GB (occurrence: GB)
  Receive Date: 20211012
  Receipt Date: 20211020
  Transmission Date: 20220303
  Serious: Yes (Other)
  Sender: FDA-Public Use
  Company Number: GB-PFIZER INC-202101333859

PATIENT
  Sex: Female

DRUGS (6)
  1. INFLIXIMAB [Suspect]
     Active Substance: INFLIXIMAB
     Dosage: 272 MG
     Route: 042
  2. INFLIXIMAB [Suspect]
     Active Substance: INFLIXIMAB
     Dosage: 272 MG
     Route: 042
  3. BACTERIOSTATIC SODIUM CHLORIDE [Suspect]
     Active Substance: SODIUM CHLORIDE
     Indication: Medication dilution
     Dosage: UNK
     Route: 042
  4. BACTERIOSTATIC SODIUM CHLORIDE [Suspect]
     Active Substance: SODIUM CHLORIDE
     Dosage: UNK
     Route: 042
  5. STERILE WATER [Suspect]
     Active Substance: WATER
     Indication: Medication dilution
     Dosage: UNK
     Route: 042
  6. STERILE WATER [Suspect]
     Active Substance: WATER
     Dosage: UNK
     Route: 042

REACTIONS (3)
  - Dementia [Unknown]
  - Cough [Not Recovered/Not Resolved]
  - Depression [Unknown]
